FAERS Safety Report 11399985 (Version 1)
Quarter: 2015Q3

REPORT INFORMATION
  Report Type: Spontaneous
  Country: US (occurrence: None)
  Receive Date: 20150819
  Receipt Date: 20150819
  Transmission Date: 20151125
  Serious: Yes (Hospitalization)
  Sender: FDA-Public Use
  Company Number: None

PATIENT
  Age: 17 Year
  Sex: Female
  Weight: 48.6 kg

DRUGS (1)
  1. CASPOFUNGIN ACETATE [Suspect]
     Active Substance: CASPOFUNGIN ACETATE
     Dates: end: 20150728

REACTIONS (6)
  - Pleural effusion [None]
  - Thoracotomy [None]
  - Tachycardia [None]
  - Partial lung resection [None]
  - Febrile neutropenia [None]
  - Pulmonary mycosis [None]

NARRATIVE: CASE EVENT DATE: 20150729
